FAERS Safety Report 6867711-X (Version None)
Quarter: 2010Q3

REPORT INFORMATION
  Report Type: 
  Country: None (occurrence: None)
  Receive Date: 20100722
  Receipt Date: 20100603
  Transmission Date: 20110219
  Serious: No
  Sender: FDA-Public Use
  Company Number: US-BAUSCH-2010BL002973

PATIENT
  Age: 58 Year
  Sex: Male
  Weight: 97 kg

DRUGS (4)
  1. OPCON-A [Suspect]
     Indication: EYE PRURITUS
     Route: 047
     Dates: start: 20100530, end: 20100530
  2. OPCON-A [Suspect]
     Indication: OCULAR HYPERAEMIA
     Route: 047
     Dates: start: 20100530, end: 20100530
  3. OPCON-A [Suspect]
     Route: 047
     Dates: start: 20100601, end: 20100601
  4. OPCON-A [Suspect]
     Route: 047
     Dates: start: 20100601, end: 20100601

REACTIONS (2)
  - MYDRIASIS [None]
  - VISION BLURRED [None]
